FAERS Safety Report 5541864-8 (Version None)
Quarter: 2007Q4

REPORT INFORMATION
  Report Type: 
  Country: None (occurrence: None)
  Receive Date: 20071210
  Receipt Date: 20071129
  Transmission Date: 20080405
  Serious: Yes (Other)
  Sender: FDA-Public Use
  Company Number: FR-ROCHE-520796

PATIENT
  Age: 53 Year
  Sex: Female
  Weight: 70 kg

DRUGS (3)
  1. XENICAL [Suspect]
     Indication: OVERWEIGHT
     Dosage: THREE DOSES DAILY
     Route: 048
     Dates: start: 20061218, end: 20070521
  2. GLUCOPHAGE [Concomitant]
     Dosage: THREE DOSES DAILY, DRUG NAME: GLUCOPHAGE 1000
     Route: 048
  3. NOVONORM [Concomitant]
     Dosage: TWO DOSES DAILY
     Route: 048

REACTIONS (2)
  - IMPAIRED HEALING [None]
  - MACULAR HOLE [None]
